FAERS Safety Report 17481291 (Version 2)
Quarter: 2020Q1

REPORT INFORMATION
  Report Type: Spontaneous
  Country: US (occurrence: US)
  Receive Date: 20200302
  Receipt Date: 20200309
  Transmission Date: 20200409
  Serious: No
  Sender: FDA-Public Use
  Company Number: US-SHIRE-US202008026

PATIENT
  Sex: Female

DRUGS (2)
  1. VYVANSE [Suspect]
     Active Substance: LISDEXAMFETAMINE DIMESYLATE
     Indication: ANXIETY
     Dosage: 20 MILLIGRAM
     Route: 065
  2. VYVANSE [Suspect]
     Active Substance: LISDEXAMFETAMINE DIMESYLATE
     Indication: BIPOLAR DISORDER
     Dosage: 40 MILLIGRAM
     Route: 065

REACTIONS (5)
  - Depression [Unknown]
  - Anxiety [Unknown]
  - Alopecia [Unknown]
  - Dyspnoea [Unknown]
  - Intentional product use issue [Unknown]
